FAERS Safety Report 17395790 (Version 2)
Quarter: 2020Q1

REPORT INFORMATION
  Report Type: Spontaneous
  Country: FR (occurrence: FR)
  Receive Date: 20200210
  Receipt Date: 20200324
  Transmission Date: 20200409
  Serious: Yes (Other)
  Sender: FDA-Public Use
  Company Number: NVSC2020FR027653

PATIENT
  Age: 11 Year
  Sex: Male

DRUGS (2)
  1. QUASYM L.P. [Suspect]
     Active Substance: METHYLPHENIDATE HYDROCHLORIDE
     Indication: AUTISM SPECTRUM DISORDER
     Dosage: 20 MG, QD (AT MORNING)
     Route: 065
  2. RITALIN [Suspect]
     Active Substance: METHYLPHENIDATE HYDROCHLORIDE
     Indication: AUTISM SPECTRUM DISORDER
     Dosage: 20 MG, QD
     Route: 065
     Dates: start: 201501, end: 201612

REACTIONS (4)
  - Intentional product use issue [Unknown]
  - Condition aggravated [Unknown]
  - Tic [Unknown]
  - Tourette^s disorder [Unknown]
